FAERS Safety Report 4523408-2 (Version None)
Quarter: 2004Q4

REPORT INFORMATION
  Report Type: 
  Country: None (occurrence: None)
  Receive Date: 20041117
  Receipt Date: 20040929
  Transmission Date: 20050328
  Serious: Yes (Death, Hospitalization)
  Sender: FDA-Public Use
  Company Number: US-JNJFOC-20040404604

PATIENT
  Age: 83 Year
  Sex: Female
  Weight: 47.7 kg

DRUGS (15)
  1. LEVAQUIN [Suspect]
     Indication: PNEUMONIA
     Dosage: 500 MG, 1 IN 1 DAY, INTRAVENOUS
     Route: 042
     Dates: start: 20040109, end: 20040111
  2. HEPARIN [Concomitant]
  3. SILVADINE CREAM (ALL OTHER THERAPEUTIC PRODUCTS) [Concomitant]
  4. MORPHINE SULFATE [Concomitant]
  5. LASIX [Concomitant]
  6. BENADRYL [Concomitant]
  7. TAMIFLU [Concomitant]
  8. SOLU-MEDROL [Concomitant]
  9. CARDIZEM CD [Concomitant]
  10. PROTONIX [Concomitant]
  11. HYDROCHLORIDE CREAM (HYDROCORTISONE) [Concomitant]
  12. MULTIVITAMIN [Concomitant]
  13. ALBUTEROL [Concomitant]
  14. PREDNISONE [Concomitant]
  15. DIGOXIN [Concomitant]

REACTIONS (1)
  - TOXIC EPIDERMAL NECROLYSIS [None]
